FAERS Safety Report 19908394 (Version 3)
Quarter: 2022Q1

REPORT INFORMATION
  Report Type: Spontaneous
  Country: US (occurrence: US)
  Receive Date: 20211001
  Receipt Date: 20220112
  Transmission Date: 20220423
  Serious: No
  Sender: FDA-Public Use
  Company Number: US-TAKEDA-2021TUS059401

PATIENT
  Sex: Male
  Weight: 179.4 kg

DRUGS (3)
  1. VELCADE [Suspect]
     Active Substance: BORTEZOMIB
     Indication: Amyloidosis
     Dosage: 2.8 MILLIGRAM
     Route: 058
     Dates: start: 20210811
  2. VELCADE [Suspect]
     Active Substance: BORTEZOMIB
     Dosage: 2.7 MILLIGRAM
     Route: 058
     Dates: start: 20210920
  3. VELCADE [Suspect]
     Active Substance: BORTEZOMIB
     Dosage: 2.6 MILLIGRAM
     Route: 058
     Dates: start: 20211011

REACTIONS (2)
  - No adverse event [Recovered/Resolved]
  - Off label use [Unknown]
